FAERS Safety Report 6751767-9 (Version None)
Quarter: 2010Q2

REPORT INFORMATION
  Report Type: 
  Country: None (occurrence: None)
  Receive Date: 20100602
  Receipt Date: 20100520
  Transmission Date: 20101027
  Serious: Yes (Other)
  Sender: FDA-Public Use
  Company Number: PHHY2010CZ33230

PATIENT
  Age: 32 Year
  Sex: Male

DRUGS (4)
  1. IMATINIB [Suspect]
     Indication: HYPEREOSINOPHILIC SYNDROME
     Dosage: 100 MG DAILY
  2. PREDNISONE TAB [Concomitant]
     Dosage: 1 MG/KG, UNK
  3. WARFARIN SODIUM [Concomitant]
     Dosage: UNK
  4. CORTICOSTEROIDS [Concomitant]

REACTIONS (6)
  - CHEST PAIN [None]
  - DYSPNOEA EXERTIONAL [None]
  - EJECTION FRACTION DECREASED [None]
  - ENDOCARDIAL FIBROSIS [None]
  - ENDOCARDITIS FIBROPLASTICA [None]
  - INTRACARDIAC THROMBUS [None]
